FAERS Safety Report 12420039 (Version 1)
Quarter: 2016Q2

REPORT INFORMATION
  Report Type: Report from Study
  Country: BR (occurrence: BR)
  Receive Date: 20160531
  Receipt Date: 20160531
  Transmission Date: 20160815
  Serious: Yes (Hospitalization)
  Sender: FDA-Public Use
  Company Number: BR-BIOGEN-2016BI00242067

PATIENT
  Age: 41 Year
  Sex: Female

DRUGS (4)
  1. VITAMIN D [Concomitant]
     Active Substance: CHOLECALCIFEROL
     Indication: PRODUCT USED FOR UNKNOWN INDICATION
     Route: 048
  2. AVONEX [Suspect]
     Active Substance: INTERFERON BETA-1A
     Indication: MULTIPLE SCLEROSIS
     Route: 030
     Dates: start: 20121210
  3. BACLOFEN. [Concomitant]
     Active Substance: BACLOFEN
     Indication: PROPHYLAXIS
     Route: 065
     Dates: start: 2012
  4. PAMELOR (NORTRIPTYLINE) [Concomitant]
     Indication: DEPRESSION
     Route: 065

REACTIONS (16)
  - Nosocomial infection [Unknown]
  - Thyroid cyst [Not Recovered/Not Resolved]
  - Oropharyngeal pain [Unknown]
  - Uterine leiomyoma [Unknown]
  - Infection [Unknown]
  - Renal colic [Recovered/Resolved]
  - Intestinal polyp [Unknown]
  - Bronchospasm [Recovered/Resolved]
  - Liver disorder [Not Recovered/Not Resolved]
  - Pneumonia [Unknown]
  - Nodule [Not Recovered/Not Resolved]
  - General symptom [Unknown]
  - Cardio-respiratory arrest [Unknown]
  - Multiple sclerosis relapse [Recovered/Resolved with Sequelae]
  - Abdominal pain [Not Recovered/Not Resolved]
  - Bacterial infection [Unknown]

NARRATIVE: CASE EVENT DATE: 2013
